FAERS Safety Report 19709071 (Version 1)
Quarter: 2021Q3

REPORT INFORMATION
  Report Type: Spontaneous
  Country: PT (occurrence: PT)
  Receive Date: 20210817
  Receipt Date: 20210817
  Transmission Date: 20211014
  Serious: Yes (Other)
  Sender: FDA-Public Use
  Company Number: NVSC2021PT179199

PATIENT
  Age: 54 Year
  Sex: Female

DRUGS (1)
  1. CALCIORAL [CALCIUM CARBONATE] [Suspect]
     Active Substance: CALCIUM CARBONATE
     Indication: PRODUCT USED FOR UNKNOWN INDICATION
     Dosage: 1250 MG (4 TABLETS IN THE MORNING, IN THE AFTERNOON AND IN THE EVENING)
     Route: 065

REACTIONS (3)
  - Drug dependence [Unknown]
  - Blood calcium decreased [Unknown]
  - Intentional product misuse [Unknown]

NARRATIVE: CASE EVENT DATE: 2013
